FAERS Safety Report 5104048-3 (Version None)
Quarter: 2006Q3

REPORT INFORMATION
  Report Type: 
  Country: None (occurrence: None)
  Receive Date: 20060911
  Receipt Date: 20060830
  Transmission Date: 20061208
  Serious: Yes (Death)
  Sender: FDA-Public Use
  Company Number: 2006101760

PATIENT
  Age: 68 Year
  Sex: Male
  Weight: 90 kg

DRUGS (14)
  1. VFEND [Suspect]
     Indication: DRUG USE FOR UNKNOWN INDICATION
     Dosage: 200 MG (EVERY DAY), ORAL
     Route: 048
     Dates: start: 20060721, end: 20060801
  2. POTASSIUM CHLORIDE [Suspect]
     Indication: DRUG USE FOR UNKNOWN INDICATION
     Dosage: ORAL
     Route: 048
  3. RAMIPRIL [Suspect]
     Indication: DRUG USE FOR UNKNOWN INDICATION
     Dosage: (7.5 MG), ORAL
     Route: 048
  4. PRAVASTATIN [Suspect]
     Indication: DRUG USE FOR UNKNOWN INDICATION
     Dosage: (20 MG), ORAL
     Route: 048
  5. ERLOTINIB            (ERLOTINIB) [Suspect]
     Indication: DRUG USE FOR UNKNOWN INDICATION
     Dosage: 150 MG (EVERY DAY), ORAL
     Route: 048
     Dates: start: 20060729, end: 20060730
  6. ACARBOSE [Suspect]
     Indication: DRUG USE FOR UNKNOWN INDICATION
     Dosage: (50 MG), ORAL
     Route: 048
  7. VERAPAMIL HCL [Concomitant]
  8. SPIRONOLACTONE [Concomitant]
  9. FUROSEMIDE [Concomitant]
  10. ALLOPURINOL [Concomitant]
  11. NICORANDIL                      (NICORANDIL) [Concomitant]
  12. NITROGLYCERIN [Concomitant]
  13. TERBUTALINE SULFATE [Concomitant]
  14. IPRATROPIUM BROMIDE                   (IPARTROPIUM BROMIDE) [Concomitant]

REACTIONS (5)
  - ARRHYTHMIA [None]
  - CARDIO-RESPIRATORY ARREST [None]
  - DIARRHOEA [None]
  - DRUG INTERACTION [None]
  - INFARCTION [None]
